FAERS Safety Report 13506991 (Version 2)
Quarter: 2017Q2

REPORT INFORMATION
  Report Type: Spontaneous
  Country: JP (occurrence: JP)
  Receive Date: 20170503
  Receipt Date: 20170515
  Transmission Date: 20170830
  Serious: Yes (Life-Threatening, Hospitalization)
  Sender: FDA-Public Use
  Company Number: JP-CONCORDIA PHARMACEUTICALS INC.-GSH201703-001665

PATIENT
  Age: 78 Year
  Sex: Female

DRUGS (21)
  1. KAYEXALATE [Suspect]
     Active Substance: SODIUM POLYSTYRENE SULFONATE
     Indication: RENAL FAILURE
  2. REBAMIPIDE [Concomitant]
     Active Substance: REBAMIPIDE
  3. KAYEXALATE [Suspect]
     Active Substance: SODIUM POLYSTYRENE SULFONATE
     Indication: HYPERKALAEMIA
     Route: 048
     Dates: end: 20140818
  4. ASPIRIN. [Concomitant]
     Active Substance: ASPIRIN
  5. DOXAZOSIN MESILATE [Concomitant]
     Active Substance: DOXAZOSIN MESYLATE
  6. SEVELAMER HYDROCHLORIDE [Concomitant]
     Active Substance: SEVELAMER HYDROCHLORIDE
  7. AMEZINIUM METILSULFATE [Concomitant]
     Active Substance: AMEZINIUM METILSULFATE
  8. ITRACONAZOLE. [Concomitant]
     Active Substance: ITRACONAZOLE
  9. MENATETRENONE [Concomitant]
     Active Substance: MENATETRENONE
  10. VALSARTAN. [Concomitant]
     Active Substance: VALSARTAN
  11. CILOSTAZOL. [Concomitant]
     Active Substance: CILOSTAZOL
  12. BETAHISTINE MESILATE [Concomitant]
     Active Substance: BETAHISTINE MESILATE
  13. BUCILLAMINE [Concomitant]
     Active Substance: BUCILLAMINE
  14. AMLODIPINE [Concomitant]
     Active Substance: AMLODIPINE BESYLATE
  15. CALCIUM CARBONATE. [Concomitant]
     Active Substance: CALCIUM CARBONATE
  16. LUBIPROSTONE [Concomitant]
     Active Substance: LUBIPROSTONE
  17. FUROSEMIDE. [Concomitant]
     Active Substance: FUROSEMIDE
  18. DISOPYRAMIDE [Concomitant]
     Active Substance: DISOPYRAMIDE
  19. FAMOTIDINE. [Concomitant]
     Active Substance: FAMOTIDINE
  20. CINACALCET HYDROCHLORIDE [Concomitant]
     Active Substance: CINACALCET HYDROCHLORIDE
  21. SENNOSIDE [Concomitant]
     Active Substance: SENNOSIDES

REACTIONS (8)
  - Large intestine perforation [Recovered/Resolved]
  - Abdominal pain [Recovered/Resolved]
  - Constipation [Recovered/Resolved]
  - Abdominal rigidity [Recovered/Resolved]
  - Peritonitis [Recovered/Resolved]
  - Computerised tomogram abdomen abnormal [Recovered/Resolved]
  - Abdominal rebound tenderness [Recovered/Resolved]
  - Abdominal tenderness [Recovered/Resolved]

NARRATIVE: CASE EVENT DATE: 20140818
